FAERS Safety Report 8169170-6 (Version None)
Quarter: 2012Q1

REPORT INFORMATION
  Report Type: 
  Country: None (occurrence: None)
  Receive Date: 20120227
  Receipt Date: 20120223
  Transmission Date: 20120608
  Serious: Yes (Hospitalization)
  Sender: FDA-Public Use
  Company Number: US-ABBOTT-11P-163-0886003-00

PATIENT
  Sex: Male
  Weight: 83.99 kg

DRUGS (3)
  1. HUMIRA [Suspect]
     Indication: CROHN'S DISEASE
     Route: 058
     Dates: start: 20080101
  2. PURINETHOL [Suspect]
     Indication: CROHN'S DISEASE
     Dates: end: 20101101
  3. HUMIRA [Suspect]
     Dates: start: 20111201

REACTIONS (6)
  - CROHN'S DISEASE [None]
  - RECTAL HAEMORRHAGE [None]
  - ABDOMINAL PAIN [None]
  - DIARRHOEA [None]
  - POST PROCEDURAL INFECTION [None]
  - DRUG INEFFECTIVE [None]
